FAERS Safety Report 23706202 (Version 1)
Quarter: 2024Q2

REPORT INFORMATION
  Report Type: Spontaneous
  Country: IN (occurrence: IN)
  Receive Date: 20240404
  Receipt Date: 20240404
  Transmission Date: 20240716
  Serious: Yes (Death, Hospitalization)
  Sender: FDA-Public Use
  Company Number: IN-MYLANLABS-2024M1029806

PATIENT
  Age: 47 Year
  Sex: Male

DRUGS (4)
  1. KETOCONAZOLE [Interacting]
     Active Substance: KETOCONAZOLE
     Indication: Cushing^s syndrome
     Dosage: 1200 MILLIGRAM, QD
     Route: 065
  2. ISOFLURANE [Interacting]
     Active Substance: ISOFLURANE
     Indication: General anaesthesia
     Dosage: UNK
     Route: 065
  3. SPIRONOLACTONE [Concomitant]
     Active Substance: SPIRONOLACTONE
     Indication: Cushing^s syndrome
     Dosage: 200 MILLIGRAM, QD
     Route: 065
  4. POTASSIUM [Concomitant]
     Active Substance: POTASSIUM
     Indication: Cushing^s syndrome
     Dosage: UNK
     Route: 048

REACTIONS (3)
  - Drug interaction [Fatal]
  - Hepatotoxicity [Fatal]
  - Off label use [Unknown]
